FAERS Safety Report 21855946 (Version 2)
Quarter: 2023Q1

REPORT INFORMATION
  Report Type: Spontaneous
  Country: US (occurrence: US)
  Receive Date: 20230112
  Receipt Date: 20230210
  Transmission Date: 20230418
  Serious: Yes (Life-Threatening, Hospitalization)
  Sender: FDA-Public Use
  Company Number: US-TEVA-2023-US-2843055

PATIENT
  Age: 14 Month
  Sex: Male

DRUGS (10)
  1. DIAZEPAM [Suspect]
     Active Substance: DIAZEPAM
     Indication: Paroxysmal sympathetic hyperactivity
     Route: 065
  2. CLONIDINE [Suspect]
     Active Substance: CLONIDINE
     Indication: Paroxysmal sympathetic hyperactivity
     Route: 065
  3. LORAZEPAM [Suspect]
     Active Substance: LORAZEPAM
     Indication: Paroxysmal sympathetic hyperactivity
     Route: 065
  4. BACLOFEN [Suspect]
     Active Substance: BACLOFEN
     Indication: Paroxysmal sympathetic hyperactivity
     Route: 065
  5. PROPRANOLOL [Suspect]
     Active Substance: PROPRANOLOL HYDROCHLORIDE
     Indication: Paroxysmal sympathetic hyperactivity
     Route: 065
  6. GABAPENTIN [Suspect]
     Active Substance: GABAPENTIN
     Indication: Paroxysmal sympathetic hyperactivity
     Route: 065
  7. PRECEDEX [Suspect]
     Active Substance: DEXMEDETOMIDINE HYDROCHLORIDE
     Indication: Paroxysmal sympathetic hyperactivity
     Route: 065
  8. METHADONE [Suspect]
     Active Substance: METHADONE HYDROCHLORIDE
     Indication: Paroxysmal sympathetic hyperactivity
     Route: 065
  9. BROMOCRIPTINE [Suspect]
     Active Substance: BROMOCRIPTINE
     Indication: Paroxysmal sympathetic hyperactivity
     Route: 065
  10. MELATONIN [Suspect]
     Active Substance: MELATONIN
     Indication: Paroxysmal sympathetic hyperactivity
     Route: 065

REACTIONS (1)
  - Drug ineffective [Unknown]
